FAERS Safety Report 4835449-6 (Version None)
Quarter: 2005Q4

REPORT INFORMATION
  Report Type: 
  Country: None (occurrence: None)
  Receive Date: 20051122
  Receipt Date: 20051122
  Transmission Date: 20060501
  Serious: Yes (Death, Hospitalization)
  Sender: FDA-Public Use
  Company Number: None

PATIENT
  Sex: Female
  Weight: 55.9 kg

DRUGS (3)
  1. METHOTREXATE [Suspect]
     Indication: HAEMATOPOIETIC NEOPLASM
     Dosage: SEE IMAGE
     Dates: start: 20050705, end: 20051108
  2. METHOTREXATE [Suspect]
     Indication: HAEMATOPOIETIC NEOPLASM
     Dosage: SEE IMAGE
     Dates: start: 20050705
  3. PREDNISONE [Suspect]
     Dosage: SEE IMAGE
     Route: 048
     Dates: start: 20050705, end: 20051011

REACTIONS (3)
  - HERPES ZOSTER [None]
  - MUSCULOSKELETAL STIFFNESS [None]
  - SHOULDER PAIN [None]
